FAERS Safety Report 8614918-7 (Version None)
Quarter: 2012Q3

REPORT INFORMATION
  Report Type: 
  Country: None (occurrence: None)
  Receive Date: 20120823
  Receipt Date: 20120810
  Transmission Date: 20120928
  Serious: Yes (Death, Life-Threatening, Other)
  Sender: FDA-Public Use
  Company Number: DE-PFIZER INC-2012176006

PATIENT
  Age: 73 Year
  Sex: Female
  Weight: 90 kg

DRUGS (8)
  1. TEMSIROLIMUS [Suspect]
     Dosage: 12.5 MG, UNK
     Route: 042
     Dates: start: 20120717, end: 20120717
  2. DAUNORUBICIN HCL [Suspect]
     Indication: ACUTE LEUKAEMIA
     Dosage: 117.6 MG, 1X/DAY
     Route: 042
     Dates: start: 20120712, end: 20120714
  3. DIGOXIN [Concomitant]
     Dosage: 1 MG, 1X/DAY
     Dates: start: 20120722
  4. TEMSIROLIMUS [Suspect]
     Dosage: 12.5 MG, 1X/DAY
     Route: 042
     Dates: start: 20120709, end: 20120709
  5. DIGITOXIN [Concomitant]
     Dosage: 0.2 MG, 1X/DAY
     Dates: start: 20120719, end: 20120721
  6. CYTARABINE [Concomitant]
     Indication: ACUTE LEUKAEMIA
     Dosage: 195.9 MG, PER 24 HOURS VIA PERFUSOR; STANDARD INDUCTION THERAPY
     Route: 042
     Dates: start: 20120710, end: 20120717
  7. TORSEMIDE [Concomitant]
     Dosage: 5 MG, 2X/DAY
     Dates: start: 20120719
  8. RAMIPRIL [Concomitant]
     Dosage: 2.5 MG, 1X/DAY
     Dates: start: 20120719

REACTIONS (1)
  - CARDIAC FAILURE [None]
